FAERS Safety Report 16371921 (Version 1)
Quarter: 2019Q3

REPORT INFORMATION
  Report Type: Spontaneous
  Country: US (occurrence: US)
  Receive Date: 20190529
  Receipt Date: 20190529
  Transmission Date: 20191004
  Serious: Yes (Hospitalization)
  Sender: FDA-Public Use
  Company Number: None

PATIENT
  Sex: Female

DRUGS (4)
  1. DALFAMPRIDINE. [Suspect]
     Active Substance: DALFAMPRIDINE
     Indication: MULTIPLE SCLEROSIS
     Route: 048
     Dates: start: 20181228
  2. VITAMIN D3, NITROFURANTIN, DECARA [Concomitant]
  3. DULOXETINE, CYCLOBENZAPR,NAPROXEN [Concomitant]
  4. GABAPENTIN, BUPROPN HCL, [Concomitant]

REACTIONS (1)
  - Escherichia infection [None]
